FAERS Safety Report 9402027 (Version 3)
Quarter: 2013Q3

REPORT INFORMATION
  Report Type: Report from Study
  Country: BR (occurrence: BR)
  Receive Date: 20130716
  Receipt Date: 20130913
  Transmission Date: 20140515
  Serious: Yes (Other)
  Sender: FDA-Public Use
  Company Number: PHHY2013BR074036

PATIENT
  Sex: Female
  Weight: 68 kg

DRUGS (4)
  1. SANDOSTATIN LAR [Suspect]
     Indication: PITUITARY TUMOUR
     Dosage: 20 MG, MONTHLY
     Dates: start: 20101223
  2. LOSARTAN [Concomitant]
     Indication: BLOOD PRESSURE
     Dosage: UNK , (MORNING, AFTERNOON, NIGHT AND DAWN)
     Dates: start: 200909
  3. AMLODIPINE [Concomitant]
     Indication: BLOOD PRESSURE
     Dosage: UNK , (MORNING, AFTERNOON, NIGHT AND DAWN)
     Dates: start: 200909
  4. HYDROCHLOROTHIAZIDE [Concomitant]
     Indication: BLOOD PRESSURE
     Dosage: UNK , (MORNING, AFTERNOON, NIGHT AND DAWN)
     Dates: start: 200909

REACTIONS (1)
  - Thrombosis [Unknown]
